FAERS Safety Report 18390493 (Version 1)
Quarter: 2020Q4

REPORT INFORMATION
  Report Type: Spontaneous
  Country: AU (occurrence: AU)
  Receive Date: 20201015
  Receipt Date: 20201015
  Transmission Date: 20210114
  Serious: Yes (Hospitalization, Other)
  Sender: FDA-Public Use
  Company Number: AU-HQ SPECIALTY-AU-2020INT000123

PATIENT
  Age: 79 Year
  Sex: Male

DRUGS (2)
  1. MEROPENEM. [Suspect]
     Active Substance: MEROPENEM
     Indication: SERRATIA INFECTION
     Dosage: 1 G, Q8H, POD 10-18 AND POD 21-23
     Route: 065
     Dates: start: 2019, end: 2019
  2. VANCOMYCIN [Concomitant]
     Active Substance: VANCOMYCIN
     Indication: SERRATIA INFECTION
     Dosage: VARIED FROM 1 G Q12H TO 500 MG Q24H DEPENDING ON TROUGH
     Route: 065
     Dates: start: 2019, end: 2019

REACTIONS (1)
  - Vanishing bile duct syndrome [Recovered/Resolved]

NARRATIVE: CASE EVENT DATE: 2019
